FAERS Safety Report 7371400-5 (Version None)
Quarter: 2011Q1

REPORT INFORMATION
  Report Type: 
  Country: None (occurrence: None)
  Receive Date: 20110324
  Receipt Date: 20110317
  Transmission Date: 20110831
  Serious: Yes (Other)
  Sender: FDA-Public Use
  Company Number: US-SANOFI-AVENTIS-2011SA016808

PATIENT
  Age: 26 Year
  Sex: Female

DRUGS (3)
  1. ALCOHOL [Suspect]
     Route: 048
  2. ALLERGY RELIEF MEDICINE [Suspect]
     Route: 065
  3. ALLEGRA [Suspect]
     Route: 048

REACTIONS (1)
  - LOSS OF CONSCIOUSNESS [None]
